FAERS Safety Report 10851476 (Version 1)
Quarter: 2015Q1

REPORT INFORMATION
  Report Type: Spontaneous
  Country: US (occurrence: US)
  Receive Date: 20150222
  Receipt Date: 20150222
  Transmission Date: 20150721
  Serious: No
  Sender: FDA-Public Use
  Company Number: US-ALLERGAN-1413291US

PATIENT
  Age: 60 Year
  Sex: Female

DRUGS (6)
  1. GABAPENTIN. [Concomitant]
     Active Substance: GABAPENTIN
  2. IMITREX [Concomitant]
     Active Substance: SUMATRIPTAN\SUMATRIPTAN SUCCINATE
  3. DEPAKOTE [Concomitant]
     Active Substance: DIVALPROEX SODIUM
  4. BOTOX [Suspect]
     Active Substance: ONABOTULINUMTOXINA
     Indication: MIGRAINE
     Dosage: UNK, SINGLE
     Route: 030
     Dates: start: 20140509, end: 20140509
  5. TOPAMAX [Concomitant]
     Active Substance: TOPIRAMATE
  6. PLAVIX [Concomitant]
     Active Substance: CLOPIDOGREL BISULFATE

REACTIONS (11)
  - Dizziness [Not Recovered/Not Resolved]
  - Drug ineffective [Unknown]
  - Migraine [Unknown]
  - Burning sensation [Not Recovered/Not Resolved]
  - Eyelid ptosis [Unknown]
  - Abdominal discomfort [Not Recovered/Not Resolved]
  - Dysarthria [Unknown]
  - Skin discolouration [Unknown]
  - Eye irritation [Not Recovered/Not Resolved]
  - Facial paresis [Unknown]
  - Mobility decreased [Not Recovered/Not Resolved]

NARRATIVE: CASE EVENT DATE: 20140509
